FAERS Safety Report 4559391-3 (Version None)
Quarter: 2005Q1

REPORT INFORMATION
  Report Type: 
  Country: None (occurrence: None)
  Receive Date: 20050119
  Receipt Date: 20050104
  Transmission Date: 20050727
  Serious: Yes (Hospitalization)
  Sender: FDA-Public Use
  Company Number: 9624

PATIENT
  Age: 58 Year
  Sex: Female

DRUGS (8)
  1. METHOTREXATE [Suspect]
     Indication: BREAST CANCER
     Dosage: 75 MG FREQ UNK; IV
     Route: 042
     Dates: start: 20041110, end: 20041117
  2. FLUOROURACIL [Suspect]
     Indication: BREAST CANCER
     Dosage: 1100 MG FREQ UNK; IV
     Route: 042
     Dates: start: 20041110, end: 20041117
  3. CYCLOPHOSPHAMIDE [Suspect]
     Indication: BREAST CANCER
     Dosage: 200 MG FREQ UNK; PO
     Route: 048
     Dates: start: 20041110, end: 20041124
  4. LANSOPRAZOLE [Concomitant]
  5. SENNA [Concomitant]
  6. MORPHINE SULFATE [Concomitant]
  7. LACTULOSE [Concomitant]
  8. FRUSEMIDE/AMILORIDE [Concomitant]

REACTIONS (5)
  - EPISTAXIS [None]
  - HAEMOGLOBIN DECREASED [None]
  - MOUTH ULCERATION [None]
  - NEUTROPHIL COUNT DECREASED [None]
  - WHITE BLOOD CELL COUNT DECREASED [None]
